FAERS Safety Report 7409151-0 (Version None)
Quarter: 2011Q2

REPORT INFORMATION
  Report Type: 
  Country: None (occurrence: None)
  Receive Date: 20110412
  Receipt Date: 20110405
  Transmission Date: 20111010
  Serious: Yes (Other)
  Sender: FDA-Public Use
  Company Number: US-US-EMD SERONO, INC.-7050365

PATIENT
  Sex: Female
  Weight: 69 kg

DRUGS (2)
  1. TIZANIDINE [Concomitant]
     Indication: MULTIPLE SCLEROSIS
  2. REBIF [Suspect]
     Indication: MULTIPLE SCLEROSIS
     Route: 058
     Dates: start: 20071029

REACTIONS (8)
  - INFLAMMATION [None]
  - COUGH [None]
  - SKELETAL INJURY [None]
  - PAIN IN EXTREMITY [None]
  - ERYTHEMA [None]
  - OEDEMA [None]
  - HEPATIC NEOPLASM [None]
  - LIVER FUNCTION TEST ABNORMAL [None]
